FAERS Safety Report 10067640 (Version 1)
Quarter: 2014Q2

REPORT INFORMATION
  Report Type: Spontaneous
  Country: US (occurrence: None)
  Receive Date: 20140401
  Receipt Date: 20140401
  Transmission Date: 20141212
  Serious: Yes (Other)
  Sender: FDA-Public Use
  Company Number: PHEH2013US011125

PATIENT
  Age: 84 Year
  Sex: Female

DRUGS (3)
  1. TASIGNA [Suspect]
     Dates: start: 20120901
  2. B-12-VITAMIN(CYANOCOBALAMIN) [Concomitant]
  3. ANTIHYPERTENSIVE(NO INGREDIENTS/SUBSTANCES) [Concomitant]

REACTIONS (6)
  - Atypical pneumonia [None]
  - Full blood count decreased [None]
  - Fatigue [None]
  - Malaise [None]
  - Pulmonary oedema [None]
  - Pulmonary congestion [None]
